FAERS Safety Report 5382817-2 (Version None)
Quarter: 2007Q3

REPORT INFORMATION
  Report Type: 
  Country: None (occurrence: None)
  Receive Date: 20070710
  Receipt Date: 20070626
  Transmission Date: 20080115
  Serious: Yes (Hospitalization)
  Sender: FDA-Public Use
  Company Number: US-ELI_LILLY_AND_COMPANY-US200706002103

PATIENT
  Sex: Female

DRUGS (2)
  1. FORTEO [Suspect]
     Indication: OSTEOPOROSIS
     Dates: start: 20070611
  2. FORTEO [Suspect]
     Dosage: UNK, UNK
     Dates: start: 20061201, end: 20070306

REACTIONS (4)
  - FACIAL PAIN [None]
  - FALL [None]
  - PNEUMONIA [None]
  - TIBIA FRACTURE [None]
